FAERS Safety Report 8491888-6 (Version None)
Quarter: 2012Q3

REPORT INFORMATION
  Report Type: 
  Country: None (occurrence: None)
  Receive Date: 20120706
  Receipt Date: 20111010
  Transmission Date: 20120928
  Serious: No
  Sender: FDA-Public Use
  Company Number: US-GLAXOSMITHKLINE-A0948473A

PATIENT
  Age: 72 Year
  Sex: Female

DRUGS (5)
  1. FLORICAL [Concomitant]
  2. CALAN [Concomitant]
  3. CALCIUM [Concomitant]
  4. FLUVOXAMINE [Concomitant]
  5. FLOVENT [Suspect]
     Indication: ASTHMA
     Dosage: 1PUFF TWICE PER DAY
     Route: 055
     Dates: start: 20110830, end: 20110901

REACTIONS (1)
  - EXTRASYSTOLES [None]
